FAERS Safety Report 4787509-6 (Version None)
Quarter: 2005Q4

REPORT INFORMATION
  Report Type: 
  Country: None (occurrence: None)
  Receive Date: 20051004
  Receipt Date: 20050921
  Transmission Date: 20060501
  Serious: Yes (Other)
  Sender: FDA-Public Use
  Company Number: GB-JNJFOC-20050904762

PATIENT
  Sex: Female
  Weight: 62 kg

DRUGS (4)
  1. REMICADE [Suspect]
     Indication: RHEUMATOID ARTHRITIS
     Route: 042
  2. HCQ [Concomitant]
     Route: 065
  3. METHOTREXATE [Concomitant]
     Route: 065
  4. SULFASALAZINE [Concomitant]
     Route: 065

REACTIONS (1)
  - SKIN CANCER [None]
